FAERS Safety Report 18480875 (Version 1)
Quarter: 2020Q4

REPORT INFORMATION
  Report Type: Spontaneous
  Country: US (occurrence: US)
  Receive Date: 20201109
  Receipt Date: 20201109
  Transmission Date: 20210114
  Serious: Yes (Other)
  Sender: FDA-Public Use
  Company Number: None

PATIENT
  Age: 40 Year
  Sex: Female
  Weight: 54 kg

DRUGS (6)
  1. BIOTIN [Concomitant]
     Active Substance: BIOTIN
  2. ESTROGEN PILLS [Concomitant]
  3. MULTIVITAMIN [Concomitant]
     Active Substance: VITAMINS
  4. CROMOLYN SODIUM. [Suspect]
     Active Substance: CROMOLYN SODIUM
     Indication: MAST CELL ACTIVATION SYNDROME
     Dosage: ?          OTHER STRENGTH:AMPULES AT 5ML-2;QUANTITY:1 AMPULE;?
     Route: 048
     Dates: start: 20201108, end: 20201109
  5. CBD/THC TINCTURE 5MG [Concomitant]
  6. PROGESTERONE CREAM [Concomitant]
     Active Substance: PROGESTERONE

REACTIONS (4)
  - Urticaria [None]
  - Body temperature fluctuation [None]
  - Anal incontinence [None]
  - Nausea [None]

NARRATIVE: CASE EVENT DATE: 20201108
